FAERS Safety Report 20306502 (Version 2)
Quarter: 2022Q1

REPORT INFORMATION
  Report Type: Report from Study
  Country: JP (occurrence: None)
  Receive Date: 20220106
  Receipt Date: 20220111
  Transmission Date: 20220423
  Serious: Yes (Hospitalization)
  Sender: FDA-Public Use
  Company Number: JP-Eisai Medical Research-EC-2022-106352

PATIENT
  Age: 58 Year
  Sex: Male
  Weight: 60.4 kg

DRUGS (17)
  1. PEMBROLIZUMAB [Suspect]
     Active Substance: PEMBROLIZUMAB
     Indication: Non-small cell lung cancer metastatic
     Route: 041
     Dates: start: 20200318, end: 20211126
  2. PEMBROLIZUMAB [Suspect]
     Active Substance: PEMBROLIZUMAB
     Route: 041
     Dates: start: 20211220, end: 20211220
  3. LENVATINIB [Suspect]
     Active Substance: LENVATINIB
     Indication: Non-small cell lung cancer metastatic
     Route: 048
     Dates: start: 20200318, end: 20211219
  4. PEMETREXED [Suspect]
     Active Substance: PEMETREXED
     Indication: Non-small cell lung cancer metastatic
     Route: 041
     Dates: start: 20200318, end: 20211126
  5. PEMETREXED [Suspect]
     Active Substance: PEMETREXED
     Route: 041
     Dates: start: 20211220, end: 20211220
  6. CARBOPLATIN [Concomitant]
     Active Substance: CARBOPLATIN
     Indication: Non-small cell lung cancer metastatic
     Route: 041
     Dates: start: 20200318, end: 20200522
  7. BISOPROLOL FUMARATE [Concomitant]
     Active Substance: BISOPROLOL FUMARATE
     Dates: start: 201901
  8. PIRENOXINE [Concomitant]
     Active Substance: PIRENOXINE
     Dates: start: 201901
  9. DOMPERIDONE [Concomitant]
     Active Substance: DOMPERIDONE
     Dates: start: 20200410
  10. DECADRON [Concomitant]
     Active Substance: DEXAMETHASONE
     Dates: start: 20200619
  11. AMLODIPINE [Concomitant]
     Active Substance: AMLODIPINE BESYLATE
     Dates: start: 20200911
  12. CARBAZOCHROME SODIUM SULFONATE [Concomitant]
     Active Substance: CARBAZOCHROME SODIUM SULFONATE
     Dates: start: 20201023
  13. UNSPECIFIED INGREDIENT [Concomitant]
     Active Substance: UNSPECIFIED INGREDIENT
     Dates: start: 20210611
  14. VILDAGLIPTIN [Concomitant]
     Active Substance: VILDAGLIPTIN
     Dates: start: 20210912
  15. METGLUCO [Concomitant]
     Active Substance: METFORMIN HYDROCHLORIDE
     Dates: start: 20210912
  16. BILASTINE [Concomitant]
     Active Substance: BILASTINE
     Dates: start: 20210929
  17. DEXAMETHASONE SODIUM PHOSPHATE [Concomitant]
     Active Substance: DEXAMETHASONE SODIUM PHOSPHATE
     Dates: start: 20211220, end: 20211220

REACTIONS (2)
  - Cellulitis [Not Recovered/Not Resolved]
  - Anaemia [Not Recovered/Not Resolved]

NARRATIVE: CASE EVENT DATE: 20211230
